FAERS Safety Report 6943283-6 (Version None)
Quarter: 2010Q3

REPORT INFORMATION
  Report Type: 
  Country: None (occurrence: None)
  Receive Date: 20100825
  Receipt Date: 20100825
  Transmission Date: 20110219
  Serious: No
  Sender: FDA-Public Use
  Company Number: None

PATIENT

DRUGS (3)
  1. CARBOPLATIN [Suspect]
  2. ABRAXANE [Suspect]
  3. AVASTIN [Suspect]

REACTIONS (2)
  - NEUTROPENIA [None]
  - PYREXIA [None]
